FAERS Safety Report 9773174 (Version 1)
Quarter: 2013Q4

REPORT INFORMATION
  Report Type: Spontaneous
  Country: US (occurrence: US)
  Receive Date: 20131219
  Receipt Date: 20131219
  Transmission Date: 20140711
  Serious: Yes (Hospitalization)
  Sender: FDA-Public Use
  Company Number: US-ROXANE LABORATORIES, INC.-2013-RO-01972RO

PATIENT
  Age: 56 Year
  Sex: Male
  Weight: 103 kg

DRUGS (2)
  1. MERCAPTOPURINE [Suspect]
     Indication: CROHN^S DISEASE
     Dosage: 100 MG
     Route: 048
     Dates: start: 20131023, end: 20131105
  2. LOSARTAN [Concomitant]

REACTIONS (7)
  - Hypersensitivity [Recovered/Resolved]
  - Gait disturbance [Recovered/Resolved]
  - Chest pain [Recovered/Resolved]
  - Hyperhidrosis [Recovered/Resolved]
  - Troponin increased [Recovered/Resolved]
  - Arthralgia [Recovered/Resolved]
  - Ejection fraction decreased [Recovered/Resolved]
